FAERS Safety Report 9775826 (Version 1)
Quarter: 2013Q4

REPORT INFORMATION
  Report Type: Spontaneous
  Country: US (occurrence: US)
  Receive Date: 20131220
  Receipt Date: 20131220
  Transmission Date: 20140711
  Serious: Yes (Death, Hospitalization)
  Sender: FDA-Public Use
  Company Number: US-GLAXOSMITHKLINE-A1054124A

PATIENT
  Age: 95 Year
  Sex: Male

DRUGS (3)
  1. FLOVENT [Suspect]
     Indication: CHRONIC OBSTRUCTIVE PULMONARY DISEASE
     Route: 055
  2. NEBULIZER [Concomitant]
  3. UNKNOWN [Concomitant]

REACTIONS (5)
  - Death [Fatal]
  - Cerebral thrombosis [Unknown]
  - Pneumonia [Unknown]
  - Dizziness [Unknown]
  - Dysarthria [Unknown]
